FAERS Safety Report 9315025 (Version 1)
Quarter: 2013Q2

REPORT INFORMATION
  Report Type: Spontaneous
  Country: GB (occurrence: GB)
  Receive Date: 20130529
  Receipt Date: 20130529
  Transmission Date: 20140414
  Serious: Yes (Other)
  Sender: FDA-Public Use
  Company Number: GB-ABBOTT-13X-167-1095559-00

PATIENT
  Age: 51 Year
  Sex: Male

DRUGS (3)
  1. EPILIM CHRONO [Suspect]
     Indication: EPILEPSY
     Route: 048
     Dates: end: 20130422
  2. EPILIM CHRONO [Suspect]
     Route: 048
     Dates: start: 20130422, end: 20130423
  3. ARIPIPRAZOLE [Concomitant]
     Indication: PRODUCT USED FOR UNKNOWN INDICATION

REACTIONS (2)
  - Feeling abnormal [Recovered/Resolved]
  - Drug dispensing error [Unknown]
